FAERS Safety Report 5565690-9 (Version None)
Quarter: 2007Q4

REPORT INFORMATION
  Report Type: 
  Country: None (occurrence: None)
  Receive Date: 20071130
  Receipt Date: 20070910
  Transmission Date: 20080405
  Serious: No
  Sender: FDA-Public Use
  Company Number: US200709001899

PATIENT
  Age: 50 Year
  Sex: Female
  Weight: 149.7 kg

DRUGS (3)
  1. BYETTA [Suspect]
     Indication: TYPE 2 DIABETES MELLITUS
     Dosage: 5 UG, 2/D, SUBCUTANEOUS
     Route: 058
     Dates: start: 20070828
  2. AMARYL [Concomitant]
  3. GLUCOPHAGE [Concomitant]

REACTIONS (3)
  - DIARRHOEA [None]
  - INJECTION SITE HAEMORRHAGE [None]
  - NASAL CONGESTION [None]
